APPROVED DRUG PRODUCT: FLAREX
Active Ingredient: FLUOROMETHOLONE ACETATE
Strength: 0.1%
Dosage Form/Route: SUSPENSION/DROPS;OPHTHALMIC
Application: N019079 | Product #001
Applicant: HARROW EYE LLC
Approved: Feb 11, 1986 | RLD: Yes | RS: Yes | Type: RX